FAERS Safety Report 24404745 (Version 1)
Quarter: 2024Q4

REPORT INFORMATION
  Report Type: Report from Study
  Country: US (occurrence: US)
  Receive Date: 20241007
  Receipt Date: 20241007
  Transmission Date: 20250114
  Serious: No
  Sender: ROCHE
  Company Number: US-ROCHE-3531647

PATIENT
  Age: 78 Year
  Sex: Male

DRUGS (3)
  1. GAZYVA [Suspect]
     Active Substance: OBINUTUZUMAB
     Indication: Nephritic syndrome
     Route: 042
  2. GAZYVA [Suspect]
     Active Substance: OBINUTUZUMAB
     Indication: Glomerulonephritis membranous
  3. GAZYVA [Suspect]
     Active Substance: OBINUTUZUMAB
     Indication: Haematuria

REACTIONS (2)
  - Off label use [Unknown]
  - No adverse event [Unknown]
